FAERS Safety Report 15685668 (Version 1)
Quarter: 2018Q4

REPORT INFORMATION
  Report Type: Spontaneous
  Country: GB (occurrence: GB)
  Receive Date: 20181204
  Receipt Date: 20181204
  Transmission Date: 20190205
  Serious: Yes (Other)
  Sender: FDA-Public Use
  Company Number: GB-BRISTOL-MYERS SQUIBB COMPANY-BMS-2018-112892

PATIENT
  Age: 77 Year
  Sex: Female
  Weight: 90 kg

DRUGS (12)
  1. CALCICHEW D3 [Concomitant]
     Active Substance: CALCIUM\CHOLECALCIFEROL
     Indication: PRODUCT USED FOR UNKNOWN INDICATION
     Dosage: 2 DF= 2T, DRUG INTERVAL DOSAGE UNIT NUMBER ^1 DAY^
     Route: 065
     Dates: start: 20160125
  2. BISOPROLOL [Concomitant]
     Active Substance: BISOPROLOL
     Indication: PRODUCT USED FOR UNKNOWN INDICATION
     Dosage: 1 DF = 1 T, DRUG INTERVAL DOSAGE UNIT NUMBER ^1 DAY^
     Route: 065
     Dates: start: 20170221
  3. ZOMORPH [Concomitant]
     Active Substance: MORPHINE SULFATE
     Indication: PRODUCT USED FOR UNKNOWN INDICATION
     Dosage: 1 DF, DRUG INTERVAL DOSAGE UNIT NUMBER ^12 HOUR^
     Route: 065
     Dates: start: 20180305
  4. DABIGATRAN ETEXILATE [Concomitant]
     Active Substance: DABIGATRAN ETEXILATE
     Indication: PRODUCT USED FOR UNKNOWN INDICATION
     Dosage: 2 DF= 2 T DRUG INTERVAL DOSAGE UNIT NUMBER 1 DAY
     Route: 065
     Dates: start: 20181113
  5. METOCLOPRAMIDE. [Concomitant]
     Active Substance: METOCLOPRAMIDE
     Indication: PRODUCT USED FOR UNKNOWN INDICATION
     Dosage: 1 DF=1 T, TID
     Route: 065
     Dates: start: 20180927, end: 20181004
  6. WARFARIN SODIUM. [Concomitant]
     Active Substance: WARFARIN SODIUM
     Indication: PRODUCT USED FOR UNKNOWN INDICATION
     Dosage: 1 DF= 1 T, AS INSTRUCTED BY YELLOW INR BOOK
     Route: 065
     Dates: start: 20160125, end: 20180927
  7. FUROSEMIDE. [Concomitant]
     Active Substance: FUROSEMIDE
     Indication: PRODUCT USED FOR UNKNOWN INDICATION
     Dosage: 2 DF= 2T, DRUG INTERVAL DOSAGE UNIT NUMBER ^1 DAY^, MORNING
     Route: 065
     Dates: start: 20160125
  8. DENOSUMAB [Concomitant]
     Active Substance: DENOSUMAB
     Indication: PRODUCT USED FOR UNKNOWN INDICATION
     Dosage: AS DIRECTED
     Route: 065
  9. ATORVASTATIN [Concomitant]
     Active Substance: ATORVASTATIN
     Indication: PRODUCT USED FOR UNKNOWN INDICATION
     Dosage: 1 DF,DRUG INTERVAL DOSAGE UNIT NUMBER ^1 DAY^
     Route: 065
     Dates: start: 20180118
  10. RAMIPRIL. [Concomitant]
     Active Substance: RAMIPRIL
     Indication: PRODUCT USED FOR UNKNOWN INDICATION
     Dosage: 1 DF= 1 T, DRUG INTERVAL DOSAGE UNIT NUMER ^1 DAY^
     Route: 065
     Dates: start: 20160125
  11. APIXABAN [Suspect]
     Active Substance: APIXABAN
     Indication: PRODUCT USED FOR UNKNOWN INDICATION
     Dosage: 10 MG,DRUG INTERVAL DOSAGE UNIT NUMBER ^1 DAY^
     Route: 065
     Dates: start: 20180927
  12. BETAMETHASONE VALERATE. [Concomitant]
     Active Substance: BETAMETHASONE VALERATE
     Indication: PSORIASIS
     Dosage: 1 DF= 1 T, DRUG INTERVAL DOSAGE UNIT NUMBER ^1 DAY^
     Route: 065
     Dates: start: 20181113

REACTIONS (2)
  - Rash pustular [Unknown]
  - Pruritus [Unknown]
